FAERS Safety Report 6019822-9 (Version None)
Quarter: 2008Q4

REPORT INFORMATION
  Report Type: 
  Country: None (occurrence: None)
  Receive Date: 20081224
  Receipt Date: 20081217
  Transmission Date: 20090506
  Serious: Yes (Hospitalization)
  Sender: FDA-Public Use
  Company Number: ZW-B.I. PHARMACEUTICALS,INC./RIDGEFIELD-2008-UK-00752EX

PATIENT
  Sex: Male

DRUGS (3)
  1. VIRAMUNE [Suspect]
     Indication: HIV INFECTION
  2. KALETRA [Suspect]
     Indication: HIV INFECTION
  3. FLUCONAZOLE [Concomitant]

REACTIONS (1)
  - HEPATIC STEATOSIS [None]
